FAERS Safety Report 13430331 (Version 1)
Quarter: 2017Q2

REPORT INFORMATION
  Report Type: Report from Study
  Country: UA (occurrence: UA)
  Receive Date: 20170412
  Receipt Date: 20170412
  Transmission Date: 20170912
  Serious: Yes (Death)
  Sender: FDA-Public Use
  Company Number: UA-JNJFOC-20160613249

PATIENT
  Sex: Male
  Weight: 74 kg

DRUGS (1)
  1. PLACEBO [Suspect]
     Route: 048

REACTIONS (1)
  - Death [Fatal]
